FAERS Safety Report 5253138-3 (Version None)
Quarter: 2007Q1

REPORT INFORMATION
  Report Type: 
  Country: None (occurrence: None)
  Receive Date: 20070301
  Receipt Date: 20070222
  Transmission Date: 20070707
  Serious: Yes (Other)
  Sender: FDA-Public Use
  Company Number: GB-GLAXOSMITHKLINE-B0459464A

PATIENT
  Age: 40 Year
  Sex: Male

DRUGS (1)
  1. MALARONE [Suspect]
     Indication: MALARIA PROPHYLAXIS
     Dosage: 1TAB PER DAY
     Route: 048
     Dates: end: 20070212

REACTIONS (3)
  - ANAEMIA [None]
  - SPLENOMEGALY [None]
  - WHITE BLOOD CELL DISORDER [None]
